FAERS Safety Report 9532590 (Version 1)
Quarter: 2013Q2

REPORT INFORMATION
  Report Type: Spontaneous
  Country: TW (occurrence: None)
  Receive Date: 20130403
  Receipt Date: 20130403
  Transmission Date: 20140414
  Serious: Yes (Life-Threatening, Other)
  Sender: FDA-Public Use
  Company Number: US-2013-10027

PATIENT
  Age: 55 Year
  Sex: Female

DRUGS (4)
  1. BUSULFEX [Suspect]
  2. CYCLOPHOSPHAMIDE (CYCLOPHOSPHAMIDE) [Concomitant]
  3. CYCLOSPORIN (CICLOSPORIN) [Concomitant]
  4. PREDNISOLONE(PREDNISOLONE) [Concomitant]

REACTIONS (2)
  - Pericardial effusion [None]
  - Graft versus host disease [None]
